FAERS Safety Report 10012996 (Version 4)
Quarter: 2014Q2

REPORT INFORMATION
  Report Type: Spontaneous
  Country: US (occurrence: US)
  Receive Date: 20140314
  Receipt Date: 20140630
  Transmission Date: 20141212
  Serious: No
  Sender: FDA-Public Use
  Company Number: US-PFIZER INC-2014070440

PATIENT
  Age: 64 Year
  Sex: Male

DRUGS (2)
  1. XALKORI [Suspect]
     Indication: LUNG NEOPLASM MALIGNANT
     Dosage: 200 MG, 2X/DAY
     Dates: start: 20140215
  2. XALKORI [Suspect]
     Dosage: 250 MG, 2X/DAY

REACTIONS (6)
  - Peripheral swelling [Not Recovered/Not Resolved]
  - Diarrhoea [Unknown]
  - Nausea [Unknown]
  - Throat irritation [Unknown]
  - Oropharyngeal pain [Unknown]
  - Eczema [Unknown]
